FAERS Safety Report 10951239 (Version 2)
Quarter: 2015Q2

REPORT INFORMATION
  Report Type: Report from Study
  Country: SI (occurrence: SI)
  Receive Date: 20150324
  Receipt Date: 20150404
  Transmission Date: 20150821
  Serious: Yes (Hospitalization)
  Sender: FDA-Public Use
  Company Number: PHHY2015SI031143

PATIENT
  Sex: Female

DRUGS (2)
  1. GILENYA [Suspect]
     Active Substance: FINGOLIMOD HYDROCHLORIDE
     Indication: MULTIPLE SCLEROSIS
     Dosage: 1 DF, QD (1 CAP /24H)
     Route: 048
     Dates: start: 20150220
  2. EXTAVIA [Suspect]
     Active Substance: INTERFERON BETA-1B
     Indication: MULTIPLE SCLEROSIS
     Dosage: 1 ML, 48 HOURS
     Route: 058
     Dates: start: 201102, end: 20150108

REACTIONS (4)
  - Gait disturbance [Recovering/Resolving]
  - Multiple sclerosis relapse [Unknown]
  - Pain in extremity [Not Recovered/Not Resolved]
  - Asthenia [Recovering/Resolving]

NARRATIVE: CASE EVENT DATE: 20150225
